FAERS Safety Report 8006579-5 (Version None)
Quarter: 2011Q4

REPORT INFORMATION
  Report Type: 
  Country: None (occurrence: None)
  Receive Date: 20111227
  Receipt Date: 20111214
  Transmission Date: 20120403
  Serious: Yes (Hospitalization, Other)
  Sender: FDA-Public Use
  Company Number: US-ELI_LILLY_AND_COMPANY-US201112004585

PATIENT
  Sex: Female

DRUGS (4)
  1. ZOFRAN [Concomitant]
     Route: 064
  2. VITAMIN TAB [Concomitant]
     Route: 064
  3. PROCARDIA [Concomitant]
     Route: 064
  4. CYMBALTA [Suspect]
     Indication: DEPRESSION
     Dosage: 60 MG, UNK
     Route: 064

REACTIONS (8)
  - INITIAL INSOMNIA [None]
  - PREMATURE BABY [None]
  - FOETAL EXPOSURE DURING PREGNANCY [None]
  - CARDIAC MURMUR [None]
  - HEART RATE IRREGULAR [None]
  - EXPOSURE DURING BREAST FEEDING [None]
  - DYSPNOEA [None]
  - SOMNOLENCE [None]
